FAERS Safety Report 18708446 (Version 1)
Quarter: 2021Q1

REPORT INFORMATION
  Report Type: Spontaneous
  Country: US (occurrence: US)
  Receive Date: 20210106
  Receipt Date: 20210106
  Transmission Date: 20210419
  Serious: Yes (Hospitalization, Other)
  Sender: FDA-Public Use
  Company Number: US-OTSUKA-2020_033127

PATIENT
  Age: 2 Year
  Sex: Male

DRUGS (4)
  1. FLUDARABINE [Suspect]
     Active Substance: FLUDARABINE PHOSPHATE
     Indication: STEM CELL TRANSPLANT
     Dosage: UNK
     Route: 065
  2. BUSULFAN. [Suspect]
     Active Substance: BUSULFAN
     Indication: STEM CELL TRANSPLANT
     Dosage: UNK
     Route: 065
  3. BUSULFAN. [Suspect]
     Active Substance: BUSULFAN
     Indication: ACUTE MYELOID LEUKAEMIA
  4. FLUDARABINE [Suspect]
     Active Substance: FLUDARABINE PHOSPHATE
     Indication: ACUTE MYELOID LEUKAEMIA

REACTIONS (7)
  - Eosinophilia [Recovered/Resolved]
  - Tubulointerstitial nephritis [Unknown]
  - Pericardial effusion [Unknown]
  - Acute kidney injury [Unknown]
  - Thrombotic microangiopathy [Unknown]
  - Enterococcal bacteraemia [Unknown]
  - Product use in unapproved indication [Unknown]
